FAERS Safety Report 14558873 (Version 2)
Quarter: 2018Q2

REPORT INFORMATION
  Report Type: Report from Study
  Country: CA (occurrence: CA)
  Receive Date: 20180221
  Receipt Date: 20180406
  Transmission Date: 20180711
  Serious: Yes (Other)
  Sender: FDA-Public Use
  Company Number: CA-JNJFOC-20180226136

PATIENT
  Age: 46 Year
  Sex: Male
  Weight: 82.7 kg

DRUGS (1)
  1. REMICADE [Suspect]
     Active Substance: INFLIXIMAB
     Indication: CROHN^S DISEASE
     Dosage: STRENGTH = 100 MG
     Route: 042
     Dates: start: 20090401, end: 20180402

REACTIONS (3)
  - Herpes virus infection [Unknown]
  - Herpes ophthalmic [Unknown]
  - Cataract [Unknown]

NARRATIVE: CASE EVENT DATE: 20160401
